FAERS Safety Report 15035232 (Version 1)
Quarter: 2018Q2

REPORT INFORMATION
  Report Type: Spontaneous
  Country: US (occurrence: US)
  Receive Date: 20180529
  Receipt Date: 20180529
  Transmission Date: 20180711
  Serious: Yes (Other)
  Sender: FDA-Public Use
  Company Number: None

PATIENT
  Age: 48 Year
  Sex: Male

DRUGS (1)
  1. TACROLIMUS CAP 1MG [Suspect]
     Active Substance: TACROLIMUS
     Route: 048
     Dates: start: 20180516, end: 20180529

REACTIONS (5)
  - Headache [None]
  - Rash [None]
  - Blood pressure fluctuation [None]
  - Blood creatinine increased [None]
  - Product substitution issue [None]

NARRATIVE: CASE EVENT DATE: 20180516
